FAERS Safety Report 20931391 (Version 1)
Quarter: 2022Q2

REPORT INFORMATION
  Report Type: Report from Study
  Country: MX (occurrence: MX)
  Receive Date: 20220608
  Receipt Date: 20220608
  Transmission Date: 20220720
  Serious: Yes (Other)
  Sender: FDA-Public Use
  Company Number: MX-NOVARTISPH-NVSC2022MX131135

PATIENT
  Age: 85 Year
  Sex: Female
  Weight: 65 kg

DRUGS (6)
  1. ENTRESTO [Suspect]
     Active Substance: SACUBITRIL\VALSARTAN
     Indication: Cardiac disorder
     Dosage: 0.5 DOSAGE FORM, BID, IN THE MORNING AND AT NIGHT, STARTED 8 YEARS AGO APPROXIMATELY
     Route: 048
  2. ENTRESTO [Suspect]
     Active Substance: SACUBITRIL\VALSARTAN
     Dosage: 0.5 DOSAGE FORM, QD, AT NIGHT
     Route: 048
     Dates: start: 20220602
  3. ENTRESTO [Suspect]
     Active Substance: SACUBITRIL\VALSARTAN
     Dosage: 0.5 DOSAGE FORM, BID
     Route: 048
     Dates: start: 20220603
  4. IVABRADINE [Concomitant]
     Active Substance: IVABRADINE
     Indication: Cardiac disorder
     Dosage: 1 DOSAGE FORM, QD, STARTED 6 OR SEVEN YEARS AGO APPROXIMATELY
     Route: 048
  5. IDAPTAN MR [Concomitant]
     Indication: Cardiac disorder
     Dosage: 1 DOSAGE FORM, QD, STARTED 5 OR 7 YEARS AGO APPROXIMATELY
     Route: 048
  6. ATORVASTATIN [Concomitant]
     Active Substance: ATORVASTATIN
     Indication: Hypertriglyceridaemia
     Dosage: 1 DOSAGE FORM, QD, STARTED MORE THAN 10 YEARS AGO
     Route: 048

REACTIONS (6)
  - Gait disturbance [Not Recovered/Not Resolved]
  - Cardiac dysfunction [Unknown]
  - Blood glucose abnormal [Unknown]
  - Off label use [Unknown]
  - Expired product administered [Not Recovered/Not Resolved]
  - Inappropriate schedule of product administration [Unknown]

NARRATIVE: CASE EVENT DATE: 20220602
